FAERS Safety Report 9139034 (Version 1)
Quarter: 2013Q1

REPORT INFORMATION
  Report Type: Report from Study
  Country: US (occurrence: US)
  Receive Date: 20130305
  Receipt Date: 20130305
  Transmission Date: 20140127
  Serious: No
  Sender: FDA-Public Use
  Company Number: US-VERTEX PHARMACEUTICALS INC.-2013-002932

PATIENT
  Sex: Female

DRUGS (3)
  1. VX-950 (TELAPREVIR) [Suspect]
     Indication: HEPATITIS C
     Dosage: 750 MG, TID
     Route: 048
     Dates: start: 20130219
  2. RIBASPHERE [Suspect]
     Indication: HEPATITIS C
     Dosage: 400 MG, BID
     Route: 048
     Dates: start: 20130219
  3. PEGASYS [Suspect]
     Indication: HEPATITIS C
     Dosage: 135 ?G, WEEKLY
     Route: 058
     Dates: start: 20130219

REACTIONS (10)
  - Arthralgia [Unknown]
  - Insomnia [Unknown]
  - Crying [Unknown]
  - Mouth ulceration [Unknown]
  - Pain [Unknown]
  - Chills [Unknown]
  - Pruritus generalised [Unknown]
  - Proctalgia [Unknown]
  - Nausea [Unknown]
  - Anal pruritus [Unknown]
